FAERS Safety Report 6102889-7 (Version None)
Quarter: 2009Q1

REPORT INFORMATION
  Report Type: 
  Country: None (occurrence: None)
  Receive Date: 20090303
  Receipt Date: 20090303
  Transmission Date: 20090719
  Serious: Yes (Life-Threatening, Hospitalization, Disabling)
  Sender: FDA-Public Use
  Company Number: None

PATIENT
  Age: 27 Year
  Sex: Female
  Weight: 113.3993 kg

DRUGS (1)
  1. ONTAK [Suspect]
     Indication: LYMPHOMA
     Dosage: UNKNOWN DAILY IV DAILY
     Route: 042
     Dates: start: 20090216, end: 20090223

REACTIONS (5)
  - DRUG HYPERSENSITIVITY [None]
  - FLUID RETENTION [None]
  - MUSCLE ENZYME INCREASED [None]
  - MYALGIA [None]
  - SWELLING [None]
